FAERS Safety Report 23525003 (Version 1)
Quarter: 2024Q1

REPORT INFORMATION
  Report Type: Report from Study
  Country: US (occurrence: US)
  Receive Date: 20240215
  Receipt Date: 20240215
  Transmission Date: 20240410
  Serious: Yes (Other)
  Sender: FDA-Public Use
  Company Number: US-NOVOPROD-1174627

PATIENT
  Sex: Male
  Weight: 142.86 kg

DRUGS (1)
  1. NOVOLOG [Suspect]
     Active Substance: INSULIN ASPART
     Indication: Product used for unknown indication
     Dosage: UNK
     Route: 058
     Dates: start: 20080101

REACTIONS (3)
  - Diabetic retinopathy [Unknown]
  - Lymphoedema [Unknown]
  - Weight increased [Unknown]
